FAERS Safety Report 25687681 (Version 1)
Quarter: 2025Q3

REPORT INFORMATION
  Report Type: Spontaneous
  Country: JP (occurrence: JP)
  Receive Date: 20250817
  Receipt Date: 20250817
  Transmission Date: 20251021
  Serious: Yes (Hospitalization)
  Sender: MACLEODS
  Company Number: JP-MLMSERVICE-20250729-PI594182-00200-1

PATIENT

DRUGS (2)
  1. LEVOTHYROXINE [Suspect]
     Active Substance: LEVOTHYROXINE
     Indication: Weight control
     Dosage: SELF-ADMINISTERING HIGH DOSES OF IMPORTED THYROID HORMONES
     Route: 065
  2. LIOTHYRONINE [Suspect]
     Active Substance: LIOTHYRONINE
     Indication: Weight control
     Dosage: SELF-ADMINISTERING HIGH DOSES OF IMPORTED THYROID HORMONES
     Route: 065

REACTIONS (4)
  - Hyperthyroidism [Recovered/Resolved]
  - Blood thyroid stimulating hormone decreased [Recovered/Resolved]
  - Familial periodic paralysis [Recovered/Resolved]
  - Intentional product misuse [Recovered/Resolved]
